FAERS Safety Report 11346192 (Version 1)
Quarter: 2015Q3

REPORT INFORMATION
  Report Type: Spontaneous
  Country: US (occurrence: US)
  Receive Date: 20150803
  Receipt Date: 20150803
  Transmission Date: 20151125
  Serious: No
  Sender: FDA-Public Use
  Company Number: US-ELI_LILLY_AND_COMPANY-US201003007428

PATIENT
  Age: 48 Year
  Sex: Male

DRUGS (4)
  1. STRATTERA [Suspect]
     Active Substance: ATOMOXETINE HYDROCHLORIDE
     Dosage: 80 MG, UNK
     Dates: start: 200912, end: 201003
  2. WELLBUTRIN [Concomitant]
     Active Substance: BUPROPION HYDROCHLORIDE
     Indication: DEPRESSION
     Dosage: 200 MG, DAILY (1/D)
  3. ATIVAN [Concomitant]
     Active Substance: LORAZEPAM
     Indication: ANXIETY
     Dosage: UNK, EVERY 8 HRS
  4. LICEBRAL [Concomitant]
     Indication: DEPRESSION
     Dosage: 20 MG, UNK

REACTIONS (2)
  - Benign prostatic hyperplasia [Unknown]
  - Urinary retention [Unknown]

NARRATIVE: CASE EVENT DATE: 201002
